FAERS Safety Report 5246378-0 (Version None)
Quarter: 2007Q1

REPORT INFORMATION
  Report Type: 
  Country: None (occurrence: None)
  Receive Date: 20070226
  Receipt Date: 20070216
  Transmission Date: 20070707
  Serious: Yes (Hospitalization)
  Sender: FDA-Public Use
  Company Number: 2007PK00323

PATIENT
  Age: 20109 Day
  Sex: Female

DRUGS (5)
  1. CANDESARTAN CILEXETIL [Suspect]
     Indication: HYPERTENSION
     Route: 048
     Dates: start: 20061221
  2. CYMBALTA [Concomitant]
     Route: 048
     Dates: start: 20061109
  3. SIOFOR [Concomitant]
     Route: 048
  4. ACTRAPID [Concomitant]
     Route: 058
     Dates: start: 20061101
  5. PROTAPHANE [Concomitant]
     Route: 058
     Dates: start: 20061101

REACTIONS (2)
  - DEAFNESS [None]
  - DEAFNESS UNILATERAL [None]
